FAERS Safety Report 11247417 (Version 1)
Quarter: 2015Q2

REPORT INFORMATION
  Report Type: Spontaneous
  Country: US (occurrence: None)
  Receive Date: 20150617
  Receipt Date: 20150617
  Transmission Date: 20150821
  Serious: No
  Sender: FDA-Public Use
  Company Number: 2014TASUS000447

PATIENT
  Age: 83 Year
  Sex: Female
  Weight: 54.9 kg

DRUGS (5)
  1. ASPIRIN (ACETYLSALICYLIC ACID) [Concomitant]
     Active Substance: ASPIRIN
  2. LISINOPRIL (LISINOPRIL DIHYDRATE) [Concomitant]
  3. HETLIOZ [Suspect]
     Active Substance: TASIMELTEON
     Indication: INSOMNIA
     Dosage: 20 MG, QHS
     Route: 048
     Dates: start: 201407, end: 201407
  4. SIMVASTATIN. [Concomitant]
     Active Substance: SIMVASTATIN
  5. OXYBUTYNIN ER [Concomitant]
     Active Substance: OXYBUTYNIN

REACTIONS (5)
  - Dizziness [None]
  - Nervous system disorder [None]
  - Drug ineffective [None]
  - Off label use [None]
  - Eye disorder [None]

NARRATIVE: CASE EVENT DATE: 201407
